FAERS Safety Report 18085632 (Version 1)
Quarter: 2020Q3

REPORT INFORMATION
  Report Type: Spontaneous
  Country: US (occurrence: US)
  Receive Date: 20200728
  Receipt Date: 20200728
  Transmission Date: 20201103
  Serious: No
  Sender: FDA-Public Use
  Company Number: None

PATIENT
  Age: 57 Year
  Sex: Female

DRUGS (1)
  1. TAMOXIFEN 20MG [Suspect]
     Active Substance: TAMOXIFEN
     Indication: BREAST CANCER FEMALE
     Route: 048
     Dates: start: 20190603

REACTIONS (1)
  - Fatigue [None]
